FAERS Safety Report 6530905-7 (Version None)
Quarter: 2010Q1

REPORT INFORMATION
  Report Type: 
  Country: None (occurrence: None)
  Receive Date: 20100108
  Receipt Date: 20090528
  Transmission Date: 20100710
  Serious: No
  Sender: FDA-Public Use
  Company Number: A0787130A

PATIENT
  Sex: Female

DRUGS (16)
  1. LOVAZA [Suspect]
     Dosage: 4CAP PER DAY
     Route: 048
  2. LIPITOR [Concomitant]
  3. TRICOR [Concomitant]
  4. AZOR [Concomitant]
  5. LASIX [Concomitant]
  6. ATENOLOL [Concomitant]
  7. NEXIUM [Concomitant]
  8. LEVOXYL [Concomitant]
  9. PREMARIN [Concomitant]
  10. AMBIEN CR [Concomitant]
  11. PLAVIX [Concomitant]
  12. XANAX [Concomitant]
  13. PSORCON E [Concomitant]
  14. HALOG [Concomitant]
  15. TRANXENE [Concomitant]
  16. TRAMADOL HCL [Concomitant]

REACTIONS (1)
  - ABDOMINAL DISTENSION [None]
